FAERS Safety Report 4428853-1 (Version None)
Quarter: 2004Q3

REPORT INFORMATION
  Report Type: 
  Country: None (occurrence: None)
  Receive Date: 20040816
  Receipt Date: 20040810
  Transmission Date: 20050211
  Serious: Yes (Hospitalization)
  Sender: FDA-Public Use
  Company Number: 2004219492US

PATIENT
  Age: 62 Year
  Sex: Female

DRUGS (3)
  1. BEXTRA [Suspect]
     Dosage: 10 MG, QD, ORAL
     Route: 048
     Dates: end: 20040613
  2. PAXIL [Concomitant]
  3. LIPITOR [Concomitant]

REACTIONS (3)
  - DRUG INEFFECTIVE [None]
  - RASH ERYTHEMATOUS [None]
  - RASH PRURITIC [None]
